FAERS Safety Report 8550335-6 (Version None)
Quarter: 2012Q3

REPORT INFORMATION
  Report Type: 
  Country: None (occurrence: None)
  Receive Date: 20120730
  Receipt Date: 20120727
  Transmission Date: 20120928
  Serious: Yes (Hospitalization)
  Sender: FDA-Public Use
  Company Number: US-PFIZER INC-2012182933

PATIENT
  Sex: Male
  Weight: 99.773 kg

DRUGS (2)
  1. NITROSTAT [Suspect]
     Indication: MYOCARDIAL INFARCTION
     Dosage: 0.4 MG, AS NEEDED
     Route: 060
     Dates: start: 20120724
  2. NITROSTAT [Suspect]
     Dosage: UNK
     Route: 060

REACTIONS (2)
  - DRUG INEFFECTIVE [None]
  - ARTERIAL OCCLUSIVE DISEASE [None]
